FAERS Safety Report 24524450 (Version 1)
Quarter: 2024Q4

REPORT INFORMATION
  Report Type: Report from Study
  Country: US (occurrence: US)
  Receive Date: 20241018
  Receipt Date: 20241018
  Transmission Date: 20250115
  Serious: Yes (Hospitalization)
  Sender: ROCHE
  Company Number: US-ROCHE-10000106644

PATIENT
  Age: 82 Year
  Sex: Female

DRUGS (3)
  1. ESBRIET [Suspect]
     Active Substance: PIRFENIDONE
     Indication: Idiopathic pulmonary fibrosis
     Dosage: TAKE 3 CAPSULE(S) BY MOUTH 3 TIMES A DAY
     Route: 048
  2. CODEINE [Concomitant]
     Active Substance: CODEINE
  3. LEXAPRO [Concomitant]
     Active Substance: ESCITALOPRAM OXALATE
     Route: 048

REACTIONS (1)
  - Pneumonia [Unknown]
